FAERS Safety Report 9442406 (Version 1)
Quarter: 2013Q3

REPORT INFORMATION
  Report Type: Spontaneous
  Country: US (occurrence: US)
  Receive Date: 20130806
  Receipt Date: 20130806
  Transmission Date: 20140515
  Serious: No
  Sender: FDA-Public Use
  Company Number: US-GLAXOSMITHKLINE-A1020510A

PATIENT
  Age: 50 Year
  Sex: Female

DRUGS (8)
  1. ADVAIR [Suspect]
     Indication: BRONCHIAL HYPERREACTIVITY
     Dosage: 2PUFF TWICE PER DAY
     Route: 055
     Dates: start: 20130212
  2. SINGULAIR [Concomitant]
  3. FLONASE [Concomitant]
  4. MUCINEX [Concomitant]
  5. XOPENEX [Concomitant]
  6. OMEGA 3 [Concomitant]
  7. ZYRTEC [Concomitant]
  8. MULTIVITAMINS [Concomitant]

REACTIONS (1)
  - Muscle spasms [Recovered/Resolved]
